FAERS Safety Report 10151180 (Version 1)
Quarter: 2014Q2

REPORT INFORMATION
  Report Type: Spontaneous
  Country: US (occurrence: US)
  Receive Date: 20140502
  Receipt Date: 20140502
  Transmission Date: 20141212
  Serious: No
  Sender: FDA-Public Use
  Company Number: US-ASTRAZENECA-2014SE07825

PATIENT
  Age: 56 Year
  Sex: Female

DRUGS (7)
  1. PRILOSEC OTC [Suspect]
     Route: 048
     Dates: start: 20140113, end: 20140115
  2. ALBUTEROL [Concomitant]
     Dosage: UNK UNK, 1 /DAY
  3. PREMARIN [Concomitant]
     Dosage: UNKNOWN
  4. THEODUR [Concomitant]
     Dosage: UNKNOWN
  5. CARDIOVASCULAR SYSTEM DRUGS [Concomitant]
     Dosage: UNKNOWN
  6. BENADRYL [Concomitant]
     Dosage: UNKNOWN
  7. SINGULAIR [Concomitant]
     Dosage: UNKNOWN

REACTIONS (4)
  - Eye irritation [Recovered/Resolved]
  - Hypersensitivity [Recovered/Resolved]
  - Pruritus [Recovered/Resolved]
  - Wheezing [Recovered/Resolved]
